FAERS Safety Report 5551128-4 (Version None)
Quarter: 2007Q4

REPORT INFORMATION
  Report Type: 
  Country: None (occurrence: None)
  Receive Date: 20071212
  Receipt Date: 20071207
  Transmission Date: 20080405
  Serious: Yes (Other)
  Sender: FDA-Public Use
  Company Number: B0498651A

PATIENT
  Age: 79 Year

DRUGS (1)
  1. FLUTIDE [Suspect]
     Indication: EMPHYSEMA
     Route: 055
     Dates: start: 20070821

REACTIONS (3)
  - DYSPNOEA [None]
  - SPUTUM RETENTION [None]
  - THIRST [None]
